FAERS Safety Report 5997030-5 (Version None)
Quarter: 2008Q4

REPORT INFORMATION
  Report Type: 
  Country: None (occurrence: None)
  Receive Date: 20081209
  Receipt Date: 20081128
  Transmission Date: 20090506
  Serious: Yes (Death)
  Sender: FDA-Public Use
  Company Number: WAES 0812USA00149

PATIENT
  Age: 67 Year
  Sex: Male

DRUGS (4)
  1. COZAAR [Suspect]
     Indication: DIABETIC NEPHROPATHY
     Dosage: 25 MG/BID PO
     Route: 048
     Dates: start: 20070307, end: 20071219
  2. COZAAR [Suspect]
     Indication: HYPERTENSION
     Dosage: 25 MG/BID PO
     Route: 048
     Dates: start: 20070307, end: 20071219
  3. ATELEC [Concomitant]
  4. INSULIN [Concomitant]

REACTIONS (2)
  - CARDIO-RESPIRATORY ARREST [None]
  - CEREBROVASCULAR ACCIDENT [None]
